FAERS Safety Report 5489367-3 (Version None)
Quarter: 2007Q4

REPORT INFORMATION
  Report Type: 
  Country: None (occurrence: None)
  Receive Date: 20071018
  Receipt Date: 20071005
  Transmission Date: 20080405
  Serious: Yes (Other)
  Sender: FDA-Public Use
  Company Number: US-AMGEN-US239521

PATIENT
  Sex: Female
  Weight: 95.3 kg

DRUGS (16)
  1. ARANESP [Suspect]
     Indication: RENAL FAILURE CHRONIC
     Route: 058
     Dates: start: 20041118, end: 20070814
  2. ESTRACE [Concomitant]
     Route: 065
     Dates: end: 20070801
  3. NEORAL [Concomitant]
     Route: 065
  4. CELLCEPT [Concomitant]
     Route: 065
  5. PREDNISONE [Concomitant]
     Route: 065
  6. CLONIDINE [Concomitant]
     Route: 065
  7. LIPITOR [Concomitant]
     Route: 065
  8. ASPIRIN [Concomitant]
     Route: 065
  9. CLONAZEPAM [Concomitant]
     Route: 065
  10. TEVETEN [Concomitant]
     Route: 065
  11. ANTIVERT [Concomitant]
     Route: 065
  12. XANAX [Concomitant]
     Route: 065
  13. HYDRALAZINE HCL [Concomitant]
     Route: 065
  14. ALLOPURINOL [Concomitant]
     Route: 065
  15. FLUCONAZOLE [Concomitant]
     Route: 065
  16. LASIX [Concomitant]
     Route: 065

REACTIONS (2)
  - THROMBOPHLEBITIS SUPERFICIAL [None]
  - VERTIGO POSITIONAL [None]
